FAERS Safety Report 7413693-1 (Version None)
Quarter: 2011Q2

REPORT INFORMATION
  Report Type: 
  Country: None (occurrence: None)
  Receive Date: 20110413
  Receipt Date: 20110410
  Transmission Date: 20111010
  Serious: Yes (Other)
  Sender: FDA-Public Use
  Company Number: CO-PFIZER INC-CO-WYE-H17618010

PATIENT
  Age: 52 Year
  Sex: Male

DRUGS (8)
  1. OMEPRAZOLE [Concomitant]
     Indication: GASTRITIS
     Dosage: UNK
     Route: 048
  2. PREDNISOLONE [Concomitant]
  3. ENALAPRIL [Concomitant]
     Indication: HYPERTENSION
     Dosage: 50 MG, 2X/DAY
     Route: 048
     Dates: start: 20060101
  4. MYCOPHENOLATE MOFETIL [Concomitant]
     Indication: RENAL TRANSPLANT
     Dosage: 500 MG, 2X/DAY
     Route: 048
     Dates: start: 20060101
  5. RAPAMUNE [Suspect]
     Indication: PROPHYLAXIS AGAINST TRANSPLANT REJECTION
     Dosage: VARYING DOSE FROM 2006
     Route: 048
     Dates: start: 20060101
  6. NIFEDIPINE [Concomitant]
     Indication: HYPERTENSION
     Dosage: UNK
     Route: 048
     Dates: start: 20060101
  7. LOVASTATIN [Concomitant]
  8. MINOXIDIL [Concomitant]

REACTIONS (2)
  - CATARACT [None]
  - CHOLELITHIASIS [None]
